FAERS Safety Report 20897778 (Version 2)
Quarter: 2022Q2

REPORT INFORMATION
  Report Type: Spontaneous
  Country: GB (occurrence: GB)
  Receive Date: 20220531
  Receipt Date: 20220607
  Transmission Date: 20220721
  Serious: Yes (Hospitalization, Other)
  Sender: FDA-Public Use
  Company Number: None

PATIENT
  Age: 76 Year
  Sex: Male

DRUGS (9)
  1. VERTEPORFIN [Suspect]
     Active Substance: VERTEPORFIN
     Indication: Prostate cancer recurrent
     Dosage: 15 MG/M2 VIA INTRAVENOUS INJECTION, ADMINISTRATION WAS 10 MINUTES
     Route: 042
     Dates: start: 20220510, end: 20220510
  2. VERTEPORFIN [Suspect]
     Active Substance: VERTEPORFIN
     Indication: Antibiotic prophylaxis
  3. TAMSULOSIN [Suspect]
     Active Substance: TAMSULOSIN
     Indication: Hypotonia
     Route: 048
     Dates: start: 20220511
  4. SOLIFENACIN [Suspect]
     Active Substance: SOLIFENACIN
     Indication: Hypotonia
     Route: 048
     Dates: start: 20220513
  5. DIHYDROCODEINE [Suspect]
     Active Substance: DIHYDROCODEINE
     Indication: Pain
     Route: 048
     Dates: start: 20220513, end: 20220516
  6. MORPHINE SULFATE [Suspect]
     Active Substance: MORPHINE SULFATE
     Indication: Pain
     Dosage: 10 MCG TAKEN EVERY 2 HOURS AS NEEDED, ORALLY
     Route: 048
     Dates: start: 20220514, end: 20220516
  7. AMOXICILLIN\CLAVULANATE POTASSIUM [Concomitant]
     Active Substance: AMOXICILLIN\CLAVULANATE POTASSIUM
     Indication: Product used for unknown indication
     Route: 065
     Dates: start: 20220510, end: 20220517
  8. LACTULOSE [Concomitant]
     Active Substance: LACTULOSE
     Indication: Constipation
     Route: 048
     Dates: start: 20220511
  9. ACETAMINOPHEN [Concomitant]
     Active Substance: ACETAMINOPHEN
     Indication: Pain
     Dates: start: 20220511

REACTIONS (6)
  - Catheter site irritation [Recovering/Resolving]
  - Confusional state [Recovering/Resolving]
  - Constipation [Not Recovered/Not Resolved]
  - Catheter site pain [Recovering/Resolving]
  - Intentional medical device removal by patient [Recovering/Resolving]
  - Product use in unapproved indication [Unknown]

NARRATIVE: CASE EVENT DATE: 20220510
